FAERS Safety Report 9637710 (Version 3)
Quarter: 2014Q1

REPORT INFORMATION
  Report Type: Report from Study
  Country: US (occurrence: US)
  Receive Date: 20131022
  Receipt Date: 20140127
  Transmission Date: 20141002
  Serious: Yes (Other)
  Sender: FDA-Public Use
  Company Number: US-MERCK-1310USA006927

PATIENT
  Age: 53 Year
  Sex: Male
  Weight: 88.89 kg

DRUGS (11)
  1. BOCEPREVIR [Suspect]
     Dosage: DOSE:2400 MG, TOTAL DAILY DOSE: 7200MG, TID
     Route: 048
     Dates: start: 20130925
  2. REBETOL [Suspect]
     Dosage: DOSE:1200 MG, TOTAL DAILY DOSE: 2400MG,BID
     Route: 048
     Dates: start: 20130828
  3. PEGINTRON [Suspect]
     Dosage: 150 MICROGRAM, QW
     Route: 058
     Dates: start: 20130828
  4. PEGINTRON [Suspect]
     Dosage: 105 MICROGRAM, QW
     Route: 058
  5. TRUVADA [Concomitant]
  6. ISENTRESS [Concomitant]
  7. OMEGA-3 MARINE TRIGLYCERIDES [Concomitant]
  8. VITAMINS (UNSPECIFIED) [Concomitant]
  9. NOVOLOG [Concomitant]
  10. LANTUS [Concomitant]
  11. GREEN TEA [Concomitant]
     Dosage: 1 CUP DAILY

REACTIONS (1)
  - Neutropenia [Recovered/Resolved]
